FAERS Safety Report 10457521 (Version 1)
Quarter: 2014Q3

REPORT INFORMATION
  Report Type: Spontaneous
  Country: US (occurrence: US)
  Receive Date: 20140916
  Receipt Date: 20140916
  Transmission Date: 20150326
  Serious: Yes (Hospitalization, Disabling, Other)
  Sender: FDA-Public Use
  Company Number: US-ELI_LILLY_AND_COMPANY-US201409002678

PATIENT
  Age: 69 Year
  Sex: Female

DRUGS (19)
  1. HUMALOG [Suspect]
     Active Substance: INSULIN LISPRO
     Indication: TYPE 1 DIABETES MELLITUS
     Dosage: UNK UNK, PRN
     Route: 065
  2. CILOSTAZOL. [Concomitant]
     Active Substance: CILOSTAZOL
  3. POTASSIUM [Concomitant]
     Active Substance: POTASSIUM
  4. METHOTREXATE [Concomitant]
     Active Substance: METHOTREXATE
  5. COLACE [Concomitant]
     Active Substance: DOCUSATE SODIUM
  6. RANITIDINE [Concomitant]
     Active Substance: RANITIDINE\RANITIDINE HYDROCHLORIDE
  7. CREON [Concomitant]
     Active Substance: PANCRELIPASE AMYLASE\PANCRELIPASE LIPASE\PANCRELIPASE PROTEASE
  8. CARAFATE [Concomitant]
     Active Substance: SUCRALFATE
  9. NEXIUM [Concomitant]
     Active Substance: ESOMEPRAZOLE MAGNESIUM
  10. ASPIRIN. [Concomitant]
     Active Substance: ASPIRIN
  11. LANTUS [Concomitant]
     Active Substance: INSULIN GLARGINE
  12. SIMVASTATIN. [Concomitant]
     Active Substance: SIMVASTATIN
  13. LASIX [Concomitant]
     Active Substance: FUROSEMIDE
  14. PHENERGAN [Concomitant]
     Active Substance: PROMETHAZINE HYDROCHLORIDE
  15. LORTAB [Concomitant]
     Active Substance: ACETAMINOPHEN\HYDROCODONE BITARTRATE
  16. HUMALOG [Suspect]
     Active Substance: INSULIN LISPRO
     Indication: TYPE 1 DIABETES MELLITUS
     Dosage: UNK, PRN
     Route: 065
  17. FOLIC ACID. [Concomitant]
     Active Substance: FOLIC ACID
  18. GABAPENTIN. [Concomitant]
     Active Substance: GABAPENTIN
  19. PREDNISONE. [Concomitant]
     Active Substance: PREDNISONE

REACTIONS (9)
  - Haemorrhage [Recovered/Resolved]
  - Blood glucose increased [Not Recovered/Not Resolved]
  - Arthritis [Not Recovered/Not Resolved]
  - Blindness [Not Recovered/Not Resolved]
  - Eye burns [Unknown]
  - Dyspepsia [Not Recovered/Not Resolved]
  - Pain [Not Recovered/Not Resolved]
  - Malaise [Not Recovered/Not Resolved]
  - Pancreatic mass [Unknown]

NARRATIVE: CASE EVENT DATE: 2012
